FAERS Safety Report 5364187-9 (Version None)
Quarter: 2007Q2

REPORT INFORMATION
  Report Type: 
  Country: None (occurrence: None)
  Receive Date: 20070620
  Receipt Date: 20070608
  Transmission Date: 20071010
  Serious: Yes (Other)
  Sender: FDA-Public Use
  Company Number: US-PFIZER INC-2007048411

PATIENT
  Age: 44 Year
  Sex: Female
  Weight: 59.09 kg

DRUGS (2)
  1. VIRACEPT [Suspect]
     Indication: PROPHYLAXIS AGAINST HIV INFECTION
  2. COMBIVIR [Concomitant]

REACTIONS (9)
  - ABDOMINAL PAIN [None]
  - ASTHENIA [None]
  - BLOOD GLUCOSE INCREASED [None]
  - DIARRHOEA [None]
  - HAEMATOCRIT DECREASED [None]
  - HAEMOGLOBIN DECREASED [None]
  - HEPATIC ENZYME INCREASED [None]
  - LEUKOPENIA [None]
  - PLATELET COUNT DECREASED [None]
